FAERS Safety Report 4639244-2 (Version None)
Quarter: 2005Q2

REPORT INFORMATION
  Report Type: 
  Country: None (occurrence: None)
  Receive Date: 20050419
  Receipt Date: 20050407
  Transmission Date: 20051028
  Serious: Yes (Death, Hospitalization)
  Sender: FDA-Public Use
  Company Number: FR-SANOFI-SYNTHELABO-A02200500978

PATIENT
  Sex: Male

DRUGS (6)
  1. SOLIAN [Suspect]
     Indication: DRUG USE FOR UNKNOWN INDICATION
     Route: 048
     Dates: start: 20050129
  2. STILNOX [Suspect]
     Indication: DRUG USE FOR UNKNOWN INDICATION
     Route: 048
     Dates: start: 20050117
  3. LEPTICUR [Suspect]
     Indication: DRUG USE FOR UNKNOWN INDICATION
     Route: 048
     Dates: start: 20050129
  4. THERALENE [Suspect]
     Indication: DRUG USE FOR UNKNOWN INDICATION
     Dosage: 80 MG
     Route: 048
     Dates: start: 20050129
  5. TERCIAN [Suspect]
     Indication: DRUG USE FOR UNKNOWN INDICATION
     Dosage: 80 MG
     Route: 048
     Dates: start: 20050109
  6. METHADONE HCL [Suspect]
     Indication: DRUG USE FOR UNKNOWN INDICATION
     Dosage: UNK
     Route: 048
     Dates: start: 20050129

REACTIONS (3)
  - CARDIAC ARREST [None]
  - CARDIO-RESPIRATORY ARREST [None]
  - ELECTROCARDIOGRAM QT PROLONGED [None]
